FAERS Safety Report 23099662 (Version 2)
Quarter: 2023Q4

REPORT INFORMATION
  Report Type: Spontaneous
  Country: US (occurrence: US)
  Receive Date: 20231024
  Receipt Date: 20231116
  Transmission Date: 20240109
  Serious: Yes (Other)
  Sender: FDA-Public Use
  Company Number: US-BIOVITRUM-2023-US-016929

PATIENT
  Age: 65 Year
  Sex: Female

DRUGS (6)
  1. DOPTELET [Suspect]
     Active Substance: AVATROMBOPAG MALEATE
     Indication: Immune thrombocytopenia
     Dosage: EVERY OTHER DAY
     Dates: start: 20230120
  2. DOPTELET [Suspect]
     Active Substance: AVATROMBOPAG MALEATE
  3. DOPTELET [Suspect]
     Active Substance: AVATROMBOPAG MALEATE
  4. CYCLOSPORINE [Concomitant]
     Active Substance: CYCLOSPORINE
     Indication: Product used for unknown indication
     Dosage: ONCE A DAY
  5. LISINOPRIL [Concomitant]
     Active Substance: LISINOPRIL
     Indication: Product used for unknown indication
  6. CARVEDILOL [Concomitant]
     Active Substance: CARVEDILOL
     Indication: Product used for unknown indication

REACTIONS (3)
  - Cataract [Recovering/Resolving]
  - Lacrimation increased [Recovering/Resolving]
  - Visual impairment [Recovering/Resolving]
